FAERS Safety Report 8167100-4 (Version None)
Quarter: 2012Q1

REPORT INFORMATION
  Report Type: 
  Country: None (occurrence: None)
  Receive Date: 20120227
  Receipt Date: 20120221
  Transmission Date: 20120608
  Serious: Yes (Life-Threatening, Hospitalization)
  Sender: FDA-Public Use
  Company Number: US-BAYER-2011-106003

PATIENT
  Age: 43 Year
  Sex: Female

DRUGS (9)
  1. YASMIN [Suspect]
     Route: 048
  2. DOXYCYCLINE [Concomitant]
     Indication: ACNE
     Dosage: UNK
     Route: 048
     Dates: start: 20100302, end: 20100405
  3. PERCOCET [Concomitant]
  4. MIRALAX [Concomitant]
  5. AUGMENTIN '125' [Concomitant]
  6. YAZ [Suspect]
     Route: 048
  7. PROTONIX [Concomitant]
  8. KAPIDEX [Concomitant]
     Indication: GASTROOESOPHAGEAL REFLUX DISEASE
     Dosage: UNK UNK, QD
     Dates: start: 20100302, end: 20100405
  9. DROSPIRENONE AND ETHINYL ESTRADIOL [Suspect]
     Route: 048

REACTIONS (10)
  - GALLBLADDER NON-FUNCTIONING [None]
  - PULMONARY EMBOLISM [None]
  - GENERAL PHYSICAL HEALTH DETERIORATION [None]
  - ORGAN FAILURE [None]
  - CHOLECYSTITIS CHRONIC [None]
  - PAIN [None]
  - DEEP VEIN THROMBOSIS [None]
  - ANXIETY [None]
  - INJURY [None]
  - ANHEDONIA [None]
